FAERS Safety Report 22173714 (Version 2)
Quarter: 2023Q2

REPORT INFORMATION
  Report Type: Spontaneous
  Country: DE (occurrence: DE)
  Receive Date: 20230404
  Receipt Date: 20230510
  Transmission Date: 20230721
  Serious: Yes (Other)
  Sender: FDA-Public Use
  Company Number: DE-MODERNATX, INC.-MOD-2023-694649

PATIENT
  Sex: Male
  Weight: 130 kg

DRUGS (2)
  1. PREGABALIN [Suspect]
     Active Substance: PREGABALIN
     Indication: Product used for unknown indication
     Dosage: 75MG, ONE IN THE MORNING, ONE EVENING DAILY
     Route: 065
  2. SPIKEVAX [Suspect]
     Active Substance: ELASOMERAN
     Indication: COVID-19 prophylaxis
     Dosage: 1 DOSAGE FORM (DOSE 2)
     Route: 065
     Dates: start: 20220108

REACTIONS (16)
  - Paralysis [Not Recovered/Not Resolved]
  - Hepatic cirrhosis [Unknown]
  - COVID-19 immunisation [Unknown]
  - Sleep apnoea syndrome [Unknown]
  - Interchange of vaccine products [Unknown]
  - Chronic obstructive pulmonary disease [Unknown]
  - Emphysema [Unknown]
  - Asthma [Unknown]
  - Obstructive sleep apnoea syndrome [Unknown]
  - Sleep disorder [Unknown]
  - Hypoaesthesia [Unknown]
  - Visual impairment [Not Recovered/Not Resolved]
  - Dyspnoea [Unknown]
  - Balance disorder [Unknown]
  - Fatigue [Unknown]
  - Dizziness [Unknown]

NARRATIVE: CASE EVENT DATE: 20230117
